FAERS Safety Report 22312542 (Version 1)
Quarter: 2023Q2

REPORT INFORMATION
  Report Type: Spontaneous
  Country: US (occurrence: US)
  Receive Date: 20230512
  Receipt Date: 20230512
  Transmission Date: 20230721
  Serious: Yes (Other)
  Sender: FDA-Public Use
  Company Number: US-JNJFOC-20230525256

PATIENT
  Sex: Male

DRUGS (2)
  1. HALOPERIDOL [Suspect]
     Active Substance: HALOPERIDOL
     Indication: Psychotic disorder
     Route: 048
  2. HALOPERIDOL [Suspect]
     Active Substance: HALOPERIDOL
     Indication: Hallucination, auditory

REACTIONS (2)
  - Blood prolactin increased [Recovering/Resolving]
  - Extrapyramidal disorder [Unknown]
